FAERS Safety Report 23325989 (Version 1)
Quarter: 2023Q4

REPORT INFORMATION
  Report Type: Spontaneous
  Country: US (occurrence: None)
  Receive Date: 20231220
  Receipt Date: 20231220
  Transmission Date: 20240110
  Serious: Yes (Death)
  Sender: FDA-Public Use
  Company Number: None

PATIENT
  Sex: Male

DRUGS (3)
  1. GAMMAGARD LIQUID [Suspect]
     Active Substance: HUMAN IMMUNOGLOBULIN G
     Indication: Sjogren^s syndrome
     Route: 042
     Dates: start: 202203
  2. NORMAL SALINE FLUSH (5ML) [Concomitant]
  3. SODIUM CHLOR )250ML/BAG) [Concomitant]

REACTIONS (1)
  - Death [None]
